FAERS Safety Report 11105641 (Version 2)
Quarter: 2015Q2

REPORT INFORMATION
  Report Type: Spontaneous
  Country: US (occurrence: None)
  Receive Date: 20150508
  Receipt Date: 20150518
  Transmission Date: 20150821
  Serious: Yes (Death, Other)
  Sender: FDA-Public Use
  Company Number: ADR-2015-00896

PATIENT
  Age: 64 Year
  Sex: Male

DRUGS (6)
  1. SUBSYS [Suspect]
     Active Substance: FENTANYL
  2. COMPOUNDED BACLOFEN [Suspect]
     Active Substance: BACLOFEN
     Indication: CANCER PAIN
     Dosage: 14.818 MCG/DAY
  3. MORPHINE INTRATHECAL 30 MG/ML [Suspect]
     Active Substance: MORPHINE
     Indication: CANCER PAIN
     Dosage: 14.818 MG/DAY?
  4. BUPIVACAINE INTRATHECAL [Suspect]
     Active Substance: BUPIVACAINE
     Dosage: 22.227 MG/DAY
  5. BACLOFEN. [Suspect]
     Active Substance: BACLOFEN
     Route: 048
  6. BACTRIM [Suspect]
     Active Substance: SULFAMETHOXAZOLE\TRIMETHOPRIM

REACTIONS (2)
  - Terminal state [None]
  - Death [None]

NARRATIVE: CASE EVENT DATE: 20150428
